FAERS Safety Report 20010295 (Version 1)
Quarter: 2021Q4

REPORT INFORMATION
  Report Type: Spontaneous
  Country: FR (occurrence: FR)
  Receive Date: 20211028
  Receipt Date: 20211028
  Transmission Date: 20220304
  Serious: Yes (Other)
  Sender: FDA-Public Use
  Company Number: None

PATIENT
  Age: 27 Year
  Sex: Female
  Weight: 65 kg

DRUGS (2)
  1. METHOTREXATE [Suspect]
     Active Substance: METHOTREXATE
     Indication: Ectopic pregnancy
     Dosage: UNK UNK, TOTAL
     Route: 019
     Dates: start: 20210210, end: 20210210
  2. COMIRNATY [Suspect]
     Active Substance: TOZINAMERAN
     Indication: COVID-19 immunisation
     Dosage: 0.3 MILLILITER, TOTAL
     Route: 030
     Dates: start: 20210422, end: 20210422

REACTIONS (4)
  - Abortion spontaneous [Recovered/Resolved]
  - Off label use [Unknown]
  - Contraindicated product administered [Unknown]
  - Maternal exposure during pregnancy [Recovered/Resolved]

NARRATIVE: CASE EVENT DATE: 20210210
